FAERS Safety Report 7722496-X (Version None)
Quarter: 2011Q3

REPORT INFORMATION
  Report Type: 
  Country: None (occurrence: None)
  Receive Date: 20110831
  Receipt Date: 20110829
  Transmission Date: 20111222
  Serious: Yes (Other)
  Sender: FDA-Public Use
  Company Number: JP-PFIZER INC-2011179157

PATIENT
  Age: 80 Year
  Sex: Male

DRUGS (3)
  1. LYRICA [Suspect]
     Indication: LUMBAR SPINAL STENOSIS
     Dosage: 75 MG, 1X/DAY
     Route: 048
     Dates: start: 20110728, end: 20110802
  2. CELECOX [Suspect]
     Indication: LUMBAR SPINAL STENOSIS
     Dosage: 200 MG/DAY
     Route: 048
     Dates: start: 20110728, end: 20110802
  3. NOVORAPID [Concomitant]
     Indication: DIABETES MELLITUS
     Dosage: 13 UNITS/DAY
     Route: 042
     Dates: start: 20020101

REACTIONS (1)
  - BLOOD GLUCOSE INCREASED [None]
